FAERS Safety Report 5638440-5 (Version None)
Quarter: 2008Q1

REPORT INFORMATION
  Report Type: 
  Country: None (occurrence: None)
  Receive Date: 20080222
  Receipt Date: 20080207
  Transmission Date: 20080703
  Serious: Yes (Other)
  Sender: FDA-Public Use
  Company Number: 2008JP000748

PATIENT
  Age: 53 Year
  Sex: Female

DRUGS (4)
  1. PROGRAF [Suspect]
     Indication: RENAL TRANSPLANT
  2. SIMULECT [Concomitant]
  3. METHYLPREDNISOLONE [Concomitant]
  4. MYCOPHENOLATE MOFETIL [Concomitant]

REACTIONS (4)
  - BLOOD CREATININE INCREASED [None]
  - HYDRONEPHROSIS [None]
  - PYELONEPHRITIS [None]
  - URETERIC STENOSIS [None]
